FAERS Safety Report 7088485-6 (Version None)
Quarter: 2010Q4

REPORT INFORMATION
  Report Type: 
  Country: None (occurrence: None)
  Receive Date: 20101026
  Receipt Date: 20101021
  Transmission Date: 20110411
  Serious: Yes (Death, Life-Threatening, Hospitalization, Other)
  Sender: FDA-Public Use
  Company Number: 2009AC000322

PATIENT
  Age: 61 Year
  Sex: Male

DRUGS (41)
  1. DIGOXIN [Suspect]
     Dosage: 0.125 MG; QD; PO
     Route: 048
     Dates: start: 20080101
  2. DIGOXIN [Suspect]
     Indication: HEART RATE INCREASED
     Dosage: 0.5 MG; 1X; PO
     Route: 048
     Dates: start: 20071120, end: 20071120
  3. DIGOXIN [Suspect]
     Dosage: 0.25  MG; Q4HX2; PO
     Route: 048
     Dates: start: 20071120, end: 20071120
  4. DIGOXIN [Suspect]
     Dosage: 0.125 MG; QD; PO
     Route: 048
     Dates: start: 20071121, end: 20080101
  5. DIGOXIN [Suspect]
     Dosage: 0.125 MG; QD; PO
     Route: 048
     Dates: start: 20080728, end: 20081222
  6. FERROUS SULFATE [Concomitant]
  7. ARICEPT [Concomitant]
  8. HUMULIN R [Concomitant]
  9. WARFARIN [Concomitant]
  10. NAPROXEN [Concomitant]
  11. LORAZEPAM [Concomitant]
  12. SULFACETAMIDE SODIUM [Concomitant]
  13. PROPOXYPHENE-N [Concomitant]
  14. SKELAXIN [Concomitant]
  15. METOPROLOL [Concomitant]
  16. HYDROCODONE [Concomitant]
  17. LIPITOR [Concomitant]
  18. CIPROFLOXACIN [Concomitant]
  19. PROMETHAZINE [Concomitant]
  20. AMOXICILLIN [Concomitant]
  21. LIPITOR [Concomitant]
  22. FERROUS SULFATE [Concomitant]
  23. INSULIN [Concomitant]
  24. TOPROL-XL [Concomitant]
  25. COUMADIN [Concomitant]
  26. EPINEPHRINE [Concomitant]
  27. PRILOSEC [Concomitant]
  28. LOVENOX [Concomitant]
  29. NOVOLIN 70/30 [Concomitant]
  30. DILAUDID [Concomitant]
  31. LORTAB [Concomitant]
  32. ZOFRAN [Concomitant]
  33. NOVOLOG [Concomitant]
  34. HUMULIN INSULIN [Concomitant]
  35. LIPITOR [Concomitant]
  36. FERROUS SULFATE [Concomitant]
  37. METOPROLOL [Concomitant]
  38. WARFARIN [Concomitant]
  39. ATIVAN [Concomitant]
  40. ASPIRIN [Concomitant]
  41. NEXIUM [Concomitant]

REACTIONS (39)
  - ABNORMAL BEHAVIOUR [None]
  - AGITATION [None]
  - AMNESIA [None]
  - ANAEMIA [None]
  - ARTHRALGIA [None]
  - ASTHENIA [None]
  - ATRIAL FIBRILLATION [None]
  - CARDIAC ARREST [None]
  - CARDIO-RESPIRATORY ARREST [None]
  - CHEST PAIN [None]
  - CONFUSIONAL STATE [None]
  - DECUBITUS ULCER [None]
  - DEMENTIA [None]
  - DIABETES MELLITUS [None]
  - DIARRHOEA [None]
  - DIZZINESS [None]
  - DYSPHAGIA [None]
  - DYSPNOEA [None]
  - ELECTROMECHANICAL DISSOCIATION [None]
  - FACE INJURY [None]
  - FALL [None]
  - FEMUR FRACTURE [None]
  - HALLUCINATION, AUDITORY [None]
  - HALLUCINATION, VISUAL [None]
  - HEADACHE [None]
  - HIP FRACTURE [None]
  - HYPOTENSION [None]
  - IMPAIRED HEALING [None]
  - INJURY [None]
  - INTERNATIONAL NORMALISED RATIO INCREASED [None]
  - MALNUTRITION [None]
  - MEMORY IMPAIRMENT [None]
  - MENTAL DISORDER [None]
  - MUSCULOSKELETAL CHEST PAIN [None]
  - PROTHROMBIN TIME PROLONGED [None]
  - PSYCHOTIC DISORDER [None]
  - SUPRAVENTRICULAR TACHYCARDIA [None]
  - VENTRICULAR FIBRILLATION [None]
  - VOMITING [None]
